FAERS Safety Report 5520774-6 (Version None)
Quarter: 2007Q4

REPORT INFORMATION
  Report Type: 
  Country: None (occurrence: None)
  Receive Date: 20071115
  Receipt Date: 20071115
  Transmission Date: 20080405
  Serious: Yes (Other)
  Sender: FDA-Public Use
  Company Number: None

PATIENT
  Age: 37 Year
  Sex: Male
  Weight: 98.8842 kg

DRUGS (6)
  1. SINGULAIR [Suspect]
     Indication: BRONCHOSPASM
     Dosage: 10MG HS PO
     Route: 048
     Dates: start: 20061109, end: 20071113
  2. LEXAPRO [Concomitant]
  3. KLONOPIN [Concomitant]
  4. FLOVENT [Concomitant]
  5. LOPRESSOR [Concomitant]
  6. MEDROL [Concomitant]

REACTIONS (1)
  - NIGHTMARE [None]
